FAERS Safety Report 25222068 (Version 2)
Quarter: 2025Q2

REPORT INFORMATION
  Report Type: Spontaneous
  Country: US (occurrence: US)
  Receive Date: 20250421
  Receipt Date: 20250424
  Transmission Date: 20250717
  Serious: Yes (Hospitalization)
  Sender: PFIZER
  Company Number: US-PFIZER INC-202500082407

PATIENT
  Age: 70 Year
  Sex: Female

DRUGS (1)
  1. BRAFTOVI [Suspect]
     Active Substance: ENCORAFENIB
     Dosage: TAKE 4 CAPSULES (300 MG TOTAL) BY MOUTH DAILY
     Route: 048
     Dates: start: 20250404

REACTIONS (5)
  - Dyspnoea [Unknown]
  - Stridor [Unknown]
  - Throat tightness [Unknown]
  - Lip swelling [Unknown]
  - Swollen tongue [Unknown]
